FAERS Safety Report 25764947 (Version 3)
Quarter: 2025Q4

REPORT INFORMATION
  Report Type: Spontaneous
  Country: US (occurrence: US)
  Receive Date: 20250905
  Receipt Date: 20251204
  Transmission Date: 20260117
  Serious: No
  Sender: NOVARTIS
  Company Number: US-002147023-NVSC2025US136164

PATIENT
  Sex: Male

DRUGS (1)
  1. COSENTYX [Suspect]
     Active Substance: SECUKINUMAB
     Indication: Product used for unknown indication
     Route: 065

REACTIONS (2)
  - Device malfunction [Unknown]
  - Accidental exposure to product [Unknown]
